FAERS Safety Report 13906019 (Version 7)
Quarter: 2020Q3

REPORT INFORMATION
  Report Type: Report from Study
  Country: US (occurrence: US)
  Receive Date: 20170825
  Receipt Date: 20200706
  Transmission Date: 20201102
  Serious: Yes (Other)
  Sender: FDA-Public Use
  Company Number: PHHY2017US121057

PATIENT
  Age: 20 Year
  Sex: Female

DRUGS (1)
  1. GILENYA [Suspect]
     Active Substance: FINGOLIMOD HYDROCHLORIDE
     Indication: MULTIPLE SCLEROSIS
     Dosage: 0.5 MG, QD
     Route: 048
     Dates: start: 20170404

REACTIONS (14)
  - Menstruation irregular [Recovered/Resolved]
  - Disturbance in attention [Recovered/Resolved]
  - Presbyopia [Not Recovered/Not Resolved]
  - Congenital eye disorder [Unknown]
  - Optic neuritis [Recovered/Resolved]
  - Dyspnoea [Not Recovered/Not Resolved]
  - Retinal anomaly congenital [Unknown]
  - Demyelination [Unknown]
  - Chest discomfort [Not Recovered/Not Resolved]
  - Myopia [Not Recovered/Not Resolved]
  - Optic neuropathy [Not Recovered/Not Resolved]
  - Anxiety [Recovered/Resolved]
  - Melanocytic naevus [Not Recovered/Not Resolved]
  - Astigmatism [Not Recovered/Not Resolved]

NARRATIVE: CASE EVENT DATE: 20170720
